FAERS Safety Report 6369980-1 (Version None)
Quarter: 2009Q3

REPORT INFORMATION
  Report Type: 
  Country: None (occurrence: None)
  Receive Date: 20090923
  Receipt Date: 20070403
  Transmission Date: 20100115
  Serious: Yes (Hospitalization, Other)
  Sender: FDA-Public Use
  Company Number: US-ASTRAZENECA-2006UW00981

PATIENT
  Age: 14832 Day
  Sex: Female
  Weight: 84.8 kg

DRUGS (30)
  1. SEROQUEL [Suspect]
     Indication: PANIC DISORDER
     Dosage: 25 MG - 200 MG
     Route: 048
     Dates: start: 19990930
  2. SEROQUEL [Suspect]
     Indication: POST-TRAUMATIC STRESS DISORDER
     Dosage: 25 MG - 200 MG
     Route: 048
     Dates: start: 19990930
  3. SEROQUEL [Suspect]
     Indication: ABNORMAL SLEEP-RELATED EVENT
     Dosage: 25 MG - 200 MG
     Route: 048
     Dates: start: 19990930
  4. SEROQUEL [Suspect]
     Dosage: 100 MG TO 200 MG EVERYDAY
     Route: 048
     Dates: start: 19991101, end: 20010101
  5. SEROQUEL [Suspect]
     Dosage: 100 MG TO 200 MG EVERYDAY
     Route: 048
     Dates: start: 19991101, end: 20010101
  6. SEROQUEL [Suspect]
     Dosage: 100 MG TO 200 MG EVERYDAY
     Route: 048
     Dates: start: 19991101, end: 20010101
  7. RISPERDAL [Suspect]
  8. ZYPREXA [Suspect]
  9. THORAZINE [Concomitant]
  10. TRAZODONE [Concomitant]
  11. CLOZARIL [Concomitant]
  12. EFFEXOR XR [Concomitant]
     Dosage: 75-300 MG
     Route: 048
  13. PROZAC [Concomitant]
     Indication: POST-TRAUMATIC STRESS DISORDER
     Dosage: 20-40 MG
     Route: 065
  14. LEXAPRO [Concomitant]
     Route: 065
  15. TRAMADOL HCL [Concomitant]
     Route: 048
  16. VICODIN [Concomitant]
     Dosage: 5-500 MG
     Route: 048
  17. FLEXERIL [Concomitant]
     Route: 048
     Dates: start: 19910401
  18. AVANDIA [Concomitant]
     Dosage: 4-8 MG
     Route: 065
  19. TOPAMAX [Concomitant]
     Dosage: 25-50 MG
     Route: 065
  20. WELLBUTRIN [Concomitant]
     Dosage: 150-300 MG
     Route: 048
  21. GLUCOPHAGE [Concomitant]
     Route: 048
  22. PERCOCET [Concomitant]
     Indication: PAIN
     Dosage: 5-325 MG
     Route: 048
     Dates: start: 20021004
  23. VALIUM [Concomitant]
     Indication: MUSCLE SPASMS
     Route: 048
  24. LIPITOR [Concomitant]
  25. ACCUPRIL [Concomitant]
     Dosage: 10-40 MG
     Route: 048
  26. HYDROCHLOROTHIAZIDE [Concomitant]
     Route: 065
  27. ACTOS [Concomitant]
     Route: 065
  28. KLONOPIN [Concomitant]
     Indication: ANXIETY
     Dosage: 1-2 MG
     Route: 048
  29. KLONOPIN [Concomitant]
     Route: 048
  30. XANAX [Concomitant]
     Route: 065

REACTIONS (7)
  - DIABETES MELLITUS [None]
  - DIABETIC KETOACIDOSIS [None]
  - DYSLIPIDAEMIA [None]
  - HYPERTENSION [None]
  - HYPERTRIGLYCERIDAEMIA [None]
  - NEUROPATHY PERIPHERAL [None]
  - WEIGHT INCREASED [None]
